FAERS Safety Report 23753008 (Version 1)
Quarter: 2024Q2

REPORT INFORMATION
  Report Type: Spontaneous
  Country: US (occurrence: None)
  Receive Date: 20240417
  Receipt Date: 20240417
  Transmission Date: 20240715
  Serious: No
  Sender: FDA-Public Use
  Company Number: None

PATIENT
  Age: 24 Year
  Sex: Female

DRUGS (1)
  1. DUPIXENT [Suspect]
     Active Substance: DUPILUMAB
     Indication: Hypersensitivity
     Dosage: OTHER FREQUENCY : OTHER;?
     Route: 058
     Dates: start: 20240326, end: 20240412

REACTIONS (2)
  - Conjunctivitis [None]
  - Hypersensitivity [None]

NARRATIVE: CASE EVENT DATE: 20240412
